FAERS Safety Report 16069865 (Version 1)
Quarter: 2019Q1

REPORT INFORMATION
  Report Type: Spontaneous
  Country: US (occurrence: US)
  Receive Date: 20190314
  Receipt Date: 20190314
  Transmission Date: 20190418
  Serious: No
  Sender: FDA-Public Use
  Company Number: US-TEVA-2019-US-1016354

PATIENT
  Sex: Female

DRUGS (1)
  1. QUETIAPINE FUMARATE TEVA [Suspect]
     Active Substance: QUETIAPINE FUMARATE
     Route: 065

REACTIONS (5)
  - Nausea [Unknown]
  - Anxiety [Unknown]
  - Performance status decreased [Unknown]
  - Product substitution issue [Unknown]
  - Drug ineffective [Unknown]
